FAERS Safety Report 7200199-8 (Version None)
Quarter: 2010Q4

REPORT INFORMATION
  Report Type: 
  Country: None (occurrence: None)
  Receive Date: 20101228
  Receipt Date: 20101221
  Transmission Date: 20110411
  Serious: Yes (Life-Threatening)
  Sender: FDA-Public Use
  Company Number: CH-PFIZER INC-2010176276

PATIENT
  Age: 56 Year
  Sex: Male

DRUGS (4)
  1. EFFEXOR [Suspect]
     Dosage: 75 MG, 1X/DAY
     Route: 048
  2. FLUCONAZOLE [Suspect]
     Dosage: 200 MG, 1X/DAY
     Route: 048
     Dates: start: 20100927, end: 20100927
  3. METRONIDAZOLE [Suspect]
     Dosage: 500 MG, 3X/DAY
     Route: 048
     Dates: start: 20100916
  4. PANTOZOL [Concomitant]
     Dosage: 40 MG, 1X/DAY
     Route: 048

REACTIONS (1)
  - TORSADE DE POINTES [None]
